FAERS Safety Report 8383248-3 (Version None)
Quarter: 2012Q2

REPORT INFORMATION
  Report Type: 
  Country: None (occurrence: None)
  Receive Date: 20120524
  Receipt Date: 20120511
  Transmission Date: 20120825
  Serious: Yes (Hospitalization)
  Sender: FDA-Public Use
  Company Number: NL-JNJFOC-20090905414

PATIENT
  Sex: Female

DRUGS (5)
  1. IMURAN [Concomitant]
     Dates: start: 20060101
  2. INFLIXIMAB [Suspect]
     Indication: PRODUCT USED FOR UNKNOWN INDICATION
     Route: 042
     Dates: start: 20090320
  3. INFLIXIMAB [Suspect]
     Route: 042
     Dates: start: 20060524
  4. VITAMIN D [Concomitant]
  5. VITAMIN B-12 [Concomitant]

REACTIONS (1)
  - JOINT INJURY [None]
